FAERS Safety Report 17218792 (Version 1)
Quarter: 2019Q4

REPORT INFORMATION
  Report Type: Spontaneous
  Country: US (occurrence: US)
  Receive Date: 20191231
  Receipt Date: 20191231
  Transmission Date: 20200122
  Serious: No
  Sender: FDA-Public Use
  Company Number: US-VERTEX PHARMACEUTICALS-2019-013393

PATIENT
  Sex: Female

DRUGS (4)
  1. WARFARIN [Interacting]
     Active Substance: WARFARIN
     Indication: PRODUCT USED FOR UNKNOWN INDICATION
     Dosage: UNK
     Route: 065
  2. WARFARIN [Interacting]
     Active Substance: WARFARIN
     Dosage: DOSE INCREASED
     Route: 065
  3. TRIKAFTA [Suspect]
     Active Substance: ELEXACAFTOR\IVACAFTOR\TEZACAFTOR
     Indication: CYSTIC FIBROSIS
     Dosage: UNK
     Route: 048
     Dates: start: 2019
  4. VITAMIN K [PHYTOMENADIONE] [Concomitant]
     Dosage: DOSE INCREASED

REACTIONS (2)
  - Drug interaction [Unknown]
  - Oedema peripheral [Not Recovered/Not Resolved]
